FAERS Safety Report 10756950 (Version 1)
Quarter: 2015Q1

REPORT INFORMATION
  Report Type: Spontaneous
  Country: CH (occurrence: CH)
  Receive Date: 20150203
  Receipt Date: 20150203
  Transmission Date: 20150721
  Serious: Yes (Hospitalization)
  Sender: FDA-Public Use
  Company Number: PHHY2015CH010879

PATIENT
  Age: 82 Year
  Sex: Female
  Weight: 72.7 kg

DRUGS (8)
  1. ACCUPAQUE [Suspect]
     Active Substance: IOHEXOL
     Indication: RADIOACTIVE IODINE THERAPY
     Dosage: 350 ML, QD
     Route: 042
     Dates: start: 20141204, end: 20141204
  2. COVERSUM N [Concomitant]
     Active Substance: PERINDOPRIL
     Indication: ESSENTIAL HYPERTENSION
     Dosage: 5 MG, UNK
     Route: 048
  3. CIPROFLOXACIN SANDOZ [Suspect]
     Active Substance: CIPROFLOXACIN
     Indication: URINARY TRACT INFECTION
     Dosage: 500 MG, BID
     Route: 048
     Dates: start: 20141204, end: 20141204
  4. BELOC [Concomitant]
     Active Substance: METOPROLOL TARTRATE
     Indication: ESSENTIAL HYPERTENSION
     Dosage: 25 MG, QD
     Route: 048
  5. SINTROM [Concomitant]
     Active Substance: ACENOCOUMAROL
     Indication: ATRIAL FIBRILLATION
     Dosage: 1 MG, QD
     Route: 048
  6. TRAMAL [Suspect]
     Active Substance: TRAMADOL
     Indication: BONE PAIN
     Dosage: 50 MG, TID
     Route: 048
     Dates: start: 20141204, end: 20141208
  7. ZALDIAR [Concomitant]
     Active Substance: ACETAMINOPHEN\TRAMADOL HYDROCHLORIDE
     Indication: BONE PAIN
     Dosage: 1 DF, QID
     Route: 048
     Dates: start: 201410, end: 20141204
  8. TORASEMIDE [Concomitant]
     Active Substance: TORSEMIDE
     Indication: ESSENTIAL HYPERTENSION
     Dosage: 5 MG, QD
     Route: 048

REACTIONS (1)
  - Petechiae [Recovered/Resolved]

NARRATIVE: CASE EVENT DATE: 20141207
